FAERS Safety Report 7702507-8 (Version None)
Quarter: 2011Q3

REPORT INFORMATION
  Report Type: 
  Country: None (occurrence: None)
  Receive Date: 20110823
  Receipt Date: 20110815
  Transmission Date: 20111222
  Serious: No
  Sender: FDA-Public Use
  Company Number: US-BIOGENIDEC-2010BI043989

PATIENT
  Sex: Female

DRUGS (1)
  1. TYSABRI [Suspect]
     Indication: MULTIPLE SCLEROSIS
     Route: 042
     Dates: start: 20100205

REACTIONS (6)
  - PARAESTHESIA [None]
  - SWELLING [None]
  - SJOGREN'S SYNDROME [None]
  - FATIGUE [None]
  - PAIN IN EXTREMITY [None]
  - HYPOAESTHESIA [None]
